FAERS Safety Report 9879937 (Version 1)
Quarter: 2014Q1

REPORT INFORMATION
  Report Type: Spontaneous
  Country: US (occurrence: US)
  Receive Date: 20140207
  Receipt Date: 20140207
  Transmission Date: 20141002
  Serious: Yes (Hospitalization)
  Sender: FDA-Public Use
  Company Number: US-ROCHE-1340396

PATIENT
  Age: 66 Year
  Sex: Female

DRUGS (3)
  1. BONIVA [Suspect]
     Indication: OSTEOPOROSIS
     Route: 065
     Dates: start: 20131209
  2. PRILOSEC [Concomitant]
     Indication: GASTROOESOPHAGEAL REFLUX DISEASE
     Route: 065
  3. VITAMIN D3 [Concomitant]
     Route: 065

REACTIONS (5)
  - Muscle tightness [Recovered/Resolved]
  - Local swelling [Recovered/Resolved]
  - Erythema [Recovering/Resolving]
  - Soft tissue mass [Not Recovered/Not Resolved]
  - Injection site extravasation [Unknown]
